FAERS Safety Report 23115407 (Version 2)
Quarter: 2024Q1

REPORT INFORMATION
  Report Type: Report from Study
  Country: US (occurrence: US)
  Receive Date: 20231027
  Receipt Date: 20240125
  Transmission Date: 20240410
  Serious: Yes (Other)
  Sender: FDA-Public Use
  Company Number: US-BAYER-2023A152359

PATIENT
  Age: 84 Year
  Sex: Male

DRUGS (14)
  1. NUBEQA [Suspect]
     Active Substance: DAROLUTAMIDE
     Indication: Prostate cancer
     Dosage: 600 MG, BID
     Route: 048
  2. XGEVA [Concomitant]
     Active Substance: DENOSUMAB
     Dosage: 120 MG/1.7 ML
  3. AMLODIPINE BESYLATE [Concomitant]
     Active Substance: AMLODIPINE BESYLATE
     Dosage: 5 MG
  4. AZELASTINE HYDROCHLORIDE\FLUTICASONE PROPIONATE [Concomitant]
     Active Substance: AZELASTINE HYDROCHLORIDE\FLUTICASONE PROPIONATE
     Dosage: 137-50 MC
  5. AZELASTINE [Concomitant]
     Active Substance: AZELASTINE\AZELASTINE HYDROCHLORIDE
     Dosage: 500 MG
  6. BREZTRI [Concomitant]
     Active Substance: BUDESONIDE\FORMOTEROL\GLYCOPYRROLATE
     Dosage: 160-9-4
  7. FENTANYL [Concomitant]
     Active Substance: FENTANYL\FENTANYL CITRATE
     Dosage: 50MCG/HR
  8. GABAPENTIN [Concomitant]
     Active Substance: GABAPENTIN
     Dosage: 300 MG
  9. LEVOTHYROXINE [Concomitant]
     Active Substance: LEVOTHYROXINE\LEVOTHYROXINE SODIUM
     Dosage: 200 MCG
  10. MONTELUKAST [Concomitant]
     Active Substance: MONTELUKAST SODIUM
     Dosage: 10 MG
  11. ORGOVYX [Concomitant]
     Active Substance: RELUGOLIX
     Dosage: 120 MG
  12. PREDNISONE [Concomitant]
     Active Substance: PREDNISONE
     Dosage: 5 M
  13. RAMIPRIL [Concomitant]
     Active Substance: RAMIPRIL
     Dosage: 10 MG
  14. XARELTO [Concomitant]
     Active Substance: RIVAROXABAN
     Dosage: 20 MG

REACTIONS (9)
  - Arthralgia [Not Recovered/Not Resolved]
  - Hypoaesthesia [Not Recovered/Not Resolved]
  - Bronchitis chronic [Not Recovered/Not Resolved]
  - Fatigue [Not Recovered/Not Resolved]
  - Somnolence [Not Recovered/Not Resolved]
  - Decreased appetite [Not Recovered/Not Resolved]
  - Dyspnoea [Not Recovered/Not Resolved]
  - Constipation [Not Recovered/Not Resolved]
  - Diarrhoea [None]
